FAERS Safety Report 13226860 (Version 2)
Quarter: 2017Q1

REPORT INFORMATION
  Report Type: Spontaneous
  Country: US (occurrence: US)
  Receive Date: 20170213
  Receipt Date: 20170217
  Transmission Date: 20170428
  Serious: Yes (Hospitalization)
  Sender: FDA-Public Use
  Company Number: US-PFIZER INC-2017056133

PATIENT
  Age: 63 Year
  Sex: Female
  Weight: 106.6 kg

DRUGS (23)
  1. INOSITOL [Concomitant]
     Active Substance: INOSITOL
     Indication: INSOMNIA
  2. IMODIUM A-D [Concomitant]
     Active Substance: LOPERAMIDE HYDROCHLORIDE
     Dosage: 4 MG, (TWO TABLETS) 4X/DAY
     Route: 048
  3. HONEY [Concomitant]
     Active Substance: HONEY
     Indication: STOMATITIS
     Dosage: UNK UNK, AS NEEDED (3 TIMES DAILY)
     Route: 061
  4. VITAMIN B COMPLEX [Concomitant]
     Active Substance: CYANOCOBALAMIN\DEXPANTHENOL\NIACINAMIDE\PYRIDOXINE HYDROCHLORIDE\RIBOFLAVIN 5^-PHOSPHATE SODIUM\THIAMINE HYDROCHLORIDE\VITAMIN B COMPLEX
     Indication: NEUROPATHY PERIPHERAL
  5. BIOTIN [Concomitant]
     Active Substance: BIOTIN
     Indication: HAIR GROWTH ABNORMAL
     Dosage: 1 CAP, DAILY
  6. MAGNESIUM GLYCINATE [Concomitant]
     Active Substance: MAGNESIUM GLYCINATE
     Indication: BLOOD MAGNESIUM
     Dosage: 1 CAPSULE, 3X/DAY
  7. ZOFRAN [Concomitant]
     Active Substance: ONDANSETRON HYDROCHLORIDE
     Indication: NAUSEA
     Dosage: 8 MG, 1 TAB AS NEEDED (EVERY 8 HOURS)
     Route: 048
  8. VITAMIN D3 [Concomitant]
     Active Substance: CHOLECALCIFEROL
     Indication: BONE DISORDER
     Dosage: 5000 IU, 1 CAP 1X/DAY (TAKE WITH FOOD)
     Route: 048
  9. COMPAZINE [Concomitant]
     Active Substance: PROCHLORPERAZINE MALEATE
     Indication: NAUSEA
     Dosage: 10 MG, 1 TAB AS NEEDED (EVERY 6 HOURS)
     Route: 048
  10. COENZYME Q10 [Concomitant]
     Active Substance: UBIDECARENONE
     Indication: CARDIAC DISORDER
     Dosage: 200 MG, 1 CAP 1X/DAY
     Route: 048
  11. LEVOTHYROXINE. [Concomitant]
     Active Substance: LEVOTHYROXINE
     Dosage: 175 UG, 1X/DAY
     Route: 048
  12. B6 [Concomitant]
     Active Substance: PYRIDOXINE HYDROCHLORIDE
     Indication: ASTHENIA
     Dosage: 1 CAP(S), 1X/DAY (WITH FOOD)
     Route: 048
  13. VITAMIN B COMPLEX [Concomitant]
     Active Substance: CYANOCOBALAMIN\DEXPANTHENOL\NIACINAMIDE\PYRIDOXINE HYDROCHLORIDE\RIBOFLAVIN 5^-PHOSPHATE SODIUM\THIAMINE HYDROCHLORIDE\VITAMIN B COMPLEX
     Indication: ASTHENIA
     Dosage: 1 CAP(S), 1X/DAY (WITH FOOD)
     Route: 048
  14. ROSUVASTATIN. [Concomitant]
     Active Substance: ROSUVASTATIN
     Dosage: 5 MG, 1 TAB 1X/DAY (AT BEDTIME)
     Route: 048
  15. CULTURELLE [Concomitant]
     Active Substance: LACTOBACILLUS RHAMNOSUS
     Indication: DYSPEPSIA
     Dosage: 1 CAP, 2X/DAY (10 BILLION CELLS)(HOLD IF WBC IS BELOW 2.5)
     Route: 048
  16. AMLODIPINE AND VALSARTAN [Concomitant]
     Active Substance: AMLODIPINE\VALSARTAN
     Dosage: 1 TAB,  5-160 MG, 1X/DAY
     Route: 048
  17. B6 [Concomitant]
     Active Substance: PYRIDOXINE HYDROCHLORIDE
     Indication: NEUROPATHY PERIPHERAL
  18. INLYTA [Suspect]
     Active Substance: AXITINIB
     Indication: RENAL CANCER
     Dosage: 3 MG, 2X/DAY X 30 DAYS
     Route: 048
  19. VITAMIN D3 [Concomitant]
     Active Substance: CHOLECALCIFEROL
     Indication: IMMUNE SYSTEM DISORDER
  20. LOPERAMIDE [Concomitant]
     Active Substance: LOPERAMIDE
     Dosage: 2 MG, (1-2 CAPS ORALLY AFTER EACH LOOSE BOWEL MOVEMENT, UP TO 8 TABS DAILY)
     Route: 048
  21. INOSITOL [Concomitant]
     Active Substance: INOSITOL
     Indication: ANXIETY
     Dosage: 4000 MG, (1 SCOOP) AS NEEDED (1 SCOOP BEFORE BED) (MIX IN WATER OR JUICE)
     Route: 048
  22. COENZYME Q10 [Concomitant]
     Active Substance: UBIDECARENONE
     Indication: ASTHENIA
  23. ASPIR 81 [Concomitant]
     Dosage: 81 MG, 1 TAB 1X/DAY
     Route: 048

REACTIONS (6)
  - Weight decreased [Not Recovered/Not Resolved]
  - Urinary tract infection [Unknown]
  - Dehydration [Unknown]
  - Diarrhoea [Not Recovered/Not Resolved]
  - Dysuria [Unknown]
  - Abdominal discomfort [Unknown]
